FAERS Safety Report 7874959-4 (Version None)
Quarter: 2011Q4

REPORT INFORMATION
  Report Type: 
  Country: None (occurrence: None)
  Receive Date: 20111031
  Receipt Date: 20111007
  Transmission Date: 20120403
  Serious: Yes (Hospitalization)
  Sender: FDA-Public Use
  Company Number: CA-JNJFOC-20111011627

PATIENT
  Sex: Female
  Weight: 49 kg

DRUGS (2)
  1. REMICADE [Suspect]
  2. REMICADE [Suspect]
     Indication: COLITIS ULCERATIVE
     Dosage: 3 TREATMENTS IN TOTAL
     Dates: start: 20110826

REACTIONS (1)
  - ILEOSTOMY [None]
